FAERS Safety Report 4950424-9 (Version None)
Quarter: 2006Q1

REPORT INFORMATION
  Report Type: 
  Country: None (occurrence: None)
  Receive Date: 20060322
  Receipt Date: 20050506
  Transmission Date: 20060701
  Serious: Yes (Other)
  Sender: FDA-Public Use
  Company Number: GB-JNJFOC-20050406259

PATIENT
  Sex: Male

DRUGS (1)
  1. NIZORAL [Suspect]
     Route: 061
     Dates: start: 20050418

REACTIONS (4)
  - ERYTHEMA [None]
  - EYE SWELLING [None]
  - INSOMNIA [None]
  - PRURITUS [None]
